FAERS Safety Report 7915227-1 (Version None)
Quarter: 2011Q4

REPORT INFORMATION
  Report Type: 
  Country: None (occurrence: None)
  Receive Date: 20111115
  Receipt Date: 20111102
  Transmission Date: 20120403
  Serious: Yes (Other)
  Sender: FDA-Public Use
  Company Number: US-ELI_LILLY_AND_COMPANY-US201109008739

PATIENT
  Sex: Female
  Weight: 52.608 kg

DRUGS (3)
  1. CYMBALTA [Suspect]
     Indication: BIPOLAR DISORDER
     Dosage: 40 MG, QD
     Dates: start: 20070101
  2. PRENATAL VITAMINS                  /01549301/ [Concomitant]
  3. LAMICTAL [Concomitant]

REACTIONS (3)
  - ABORTION SPONTANEOUS [None]
  - MATERNAL EXPOSURE DURING PREGNANCY [None]
  - OFF LABEL USE [None]
